FAERS Safety Report 5817255-9 (Version None)
Quarter: 2008Q3

REPORT INFORMATION
  Report Type: 
  Country: None (occurrence: None)
  Receive Date: 20080722
  Receipt Date: 20080708
  Transmission Date: 20090109
  Serious: Yes (Other)
  Sender: FDA-Public Use
  Company Number: US-BAYER-200827856NA

PATIENT
  Age: 91 Year
  Sex: Female

DRUGS (2)
  1. AVELOX [Suspect]
     Indication: CELLULITIS
     Dates: start: 20080501, end: 20080101
  2. VITAMIN TAB [Concomitant]

REACTIONS (4)
  - CONFUSIONAL STATE [None]
  - CRYING [None]
  - HALLUCINATION, VISUAL [None]
  - OEDEMA PERIPHERAL [None]
